FAERS Safety Report 5448262-6 (Version None)
Quarter: 2007Q3

REPORT INFORMATION
  Report Type: 
  Country: None (occurrence: None)
  Receive Date: 20070911
  Receipt Date: 20070903
  Transmission Date: 20080115
  Serious: Yes (Hospitalization)
  Sender: FDA-Public Use
  Company Number: PHRM2007FR02111

PATIENT
  Sex: Male

DRUGS (11)
  1. NEORAL [Suspect]
     Indication: HEART TRANSPLANT
     Dosage: 75 MG, BID
     Route: 048
  2. CELLCEPT [Suspect]
     Indication: HEART TRANSPLANT
     Dosage: 1 G, BID
     Route: 048
  3. TRIATEC [Suspect]
  4. IMOVANE [Concomitant]
     Dosage: 1 DF, QD
     Route: 048
  5. ESOMEPRAZOLE MAGNESIUM [Concomitant]
     Dosage: 1 DF, QD
     Route: 048
  6. BISOPROLOL [Concomitant]
     Dosage: 10 MG, QD
     Route: 048
  7. SPECIAFOLDINE [Concomitant]
     Dosage: 2 DF DAILY
     Route: 048
  8. HYDROCORTISONE [Concomitant]
     Dosage: 30 MG DAILY
     Route: 048
     Dates: start: 20070401
  9. POTASSIUM CHLORIDE [Concomitant]
     Dosage: 3 DF DAILY
  10. PRAVASTATIN [Concomitant]
     Route: 048
  11. ALLOPURINOL [Concomitant]
     Dosage: 100 MG, QD
     Route: 048

REACTIONS (16)
  - ABSCESS INTESTINAL [None]
  - ADRENAL INSUFFICIENCY [None]
  - ANOREXIA [None]
  - BLOOD CORTISOL DECREASED [None]
  - BLOOD GROWTH HORMONE INCREASED [None]
  - CHOLECYSTECTOMY [None]
  - DIABETES MELLITUS [None]
  - GENERAL PHYSICAL HEALTH DETERIORATION [None]
  - GLUCOSE TOLERANCE TEST ABNORMAL [None]
  - HAEMODYNAMIC INSTABILITY [None]
  - HYPOGLYCAEMIA [None]
  - INSULIN C-PEPTIDE INCREASED [None]
  - INSULIN-LIKE GROWTH FACTOR INCREASED [None]
  - RENAL FAILURE ACUTE [None]
  - TONGUE OEDEMA [None]
  - WEIGHT DECREASED [None]
